FAERS Safety Report 6853511-3 (Version None)
Quarter: 2010Q3

REPORT INFORMATION
  Report Type: 
  Country: None (occurrence: None)
  Receive Date: 20100717
  Receipt Date: 20071210
  Transmission Date: 20110219
  Serious: No
  Sender: FDA-Public Use
  Company Number: US-PFIZER INC-2007105369

PATIENT
  Sex: Male
  Weight: 83.9 kg

DRUGS (10)
  1. CHANTIX [Suspect]
     Indication: SMOKING CESSATION THERAPY
     Dates: start: 20071202
  2. LEXAPRO [Concomitant]
  3. LITHIUM CARBONATE [Concomitant]
  4. BENAZEPRIL HYDROCHLORIDE [Concomitant]
  5. MORPHINE SULFATE [Concomitant]
  6. ROXICODONE [Concomitant]
  7. ESOMEPRAZOLE MAGNESIUM [Concomitant]
  8. ANTIBIOTICS [Concomitant]
  9. TOPROL-XL [Concomitant]
  10. PROMETHAZINE [Concomitant]

REACTIONS (1)
  - NAUSEA [None]
